FAERS Safety Report 20832585 (Version 1)
Quarter: 2022Q2

REPORT INFORMATION
  Report Type: 
  Country: None (occurrence: None)
  Receive Date: 20220516
  Receipt Date: 20220516
  Transmission Date: 20220720
  Serious: No
  Sender: FDA-Public Use
  Company Number: DE-ROCHE-2305869

PATIENT

DRUGS (10)
  1. OCREVUS [Suspect]
     Active Substance: OCRELIZUMAB
     Dosage: THE OCRELIZUMAB MAINTENANCE DOSE WAS ADMINISTERED ON 29/MAY/2020 AS PLANNED.
     Dates: start: 20190401, end: 20190401
  2. OCREVUS [Suspect]
     Active Substance: OCRELIZUMAB
     Dates: start: 20190415, end: 20190415
  3. OCREVUS [Suspect]
     Active Substance: OCRELIZUMAB
     Dates: start: 20191014
  4. OCREVUS [Suspect]
     Active Substance: OCRELIZUMAB
     Dates: start: 20200529
  5. OCREVUS [Suspect]
     Active Substance: OCRELIZUMAB
     Dates: start: 20201110
  6. OCREVUS [Suspect]
     Active Substance: OCRELIZUMAB
     Dates: start: 20210714
  7. COMIRNATY [Suspect]
     Active Substance: TOZINAMERAN
     Dosage: FIRST VACCINATION
     Dates: start: 20210422
  8. COMIRNATY [Suspect]
     Active Substance: TOZINAMERAN
     Dosage: SECOND DOSE
     Dates: start: 20210513
  9. CORTISONE ACETATE [Suspect]
     Active Substance: CORTISONE ACETATE
  10. DALFAMPRIDINE [Concomitant]
     Active Substance: DALFAMPRIDINE
     Dates: start: 202104

REACTIONS (27)
  - Chills [None]
  - Musculoskeletal stiffness [None]
  - Dizziness [None]
  - Skin laceration [None]
  - Pancreatic disorder [None]
  - Fall [None]
  - Aggression [None]
  - Influenza [None]
  - Cognitive disorder [None]
  - Contusion [None]
  - Asthenia [None]
  - Eye pruritus [None]
  - Skin reaction [None]
  - Fatigue [None]
  - Fatigue [None]
  - Pruritus [None]
  - Loss of consciousness [None]
  - Skin discolouration [None]
  - Nasopharyngitis [None]
  - Off label use [None]
  - Feeling cold [None]
  - Flushing [None]
  - Bone contusion [None]
  - Joint swelling [None]
  - Periorbital haematoma [None]
  - Skin abrasion [None]
  - Tremor [None]

NARRATIVE: CASE EVENT DATE: 20190402
